FAERS Safety Report 21807156 (Version 1)
Quarter: 2023Q1

REPORT INFORMATION
  Report Type: Spontaneous
  Country: PE (occurrence: BR)
  Receive Date: 20230102
  Receipt Date: 20230102
  Transmission Date: 20230418
  Serious: Yes (Other)
  Sender: FDA-Public Use
  Company Number: PE-JNJFOC-20221255809

PATIENT
  Age: 5 Year
  Sex: Male

DRUGS (1)
  1. DARZALEX [Suspect]
     Active Substance: DARATUMUMAB
     Indication: Mucopolysaccharidosis
     Dosage: 2 DOSES
     Route: 065

REACTIONS (3)
  - Encephalitis autoimmune [Unknown]
  - Guillain-Barre syndrome [Unknown]
  - Off label use [Unknown]
